FAERS Safety Report 6868722-0 (Version None)
Quarter: 2010Q3

REPORT INFORMATION
  Report Type: 
  Country: None (occurrence: None)
  Receive Date: 20100722
  Receipt Date: 20080607
  Transmission Date: 20110219
  Serious: No
  Sender: FDA-Public Use
  Company Number: US-PFIZER INC-2008048772

PATIENT
  Sex: Male
  Weight: 154.22 kg

DRUGS (7)
  1. CHANTIX [Suspect]
     Indication: SMOKING CESSATION THERAPY
     Dates: start: 20080531
  2. LISINOPRIL [Concomitant]
  3. PROZAC [Concomitant]
  4. SEROQUEL [Concomitant]
  5. HYDROCHLOROTHIAZIDE [Concomitant]
  6. CALCIUM [Concomitant]
  7. BUSPIRONE [Concomitant]

REACTIONS (1)
  - HEADACHE [None]
